FAERS Safety Report 15785150 (Version 2)
Quarter: 2019Q1

REPORT INFORMATION
  Report Type: Spontaneous
  Country: US (occurrence: US)
  Receive Date: 20190103
  Receipt Date: 20190104
  Transmission Date: 20190417
  Serious: Yes (Other)
  Sender: FDA-Public Use
  Company Number: US-PFIZER INC-2018532072

PATIENT
  Age: 85 Year
  Sex: Male

DRUGS (2)
  1. NEURONTIN [Suspect]
     Active Substance: GABAPENTIN
     Indication: POST HERPETIC NEURALGIA
     Dosage: 900-1200MG IN 3 DIVIDED DOSES
  2. NEURONTIN [Suspect]
     Active Substance: GABAPENTIN
     Dosage: 900-1200MG IN DIVIDED DOSES OF 300-400 MG 3 TO 4 TIMES A DAY

REACTIONS (2)
  - Renal impairment [Unknown]
  - Drug ineffective [Unknown]
